FAERS Safety Report 26059258 (Version 1)
Quarter: 2025Q4

REPORT INFORMATION
  Report Type: Spontaneous
  Country: EU (occurrence: EU)
  Receive Date: 20251118
  Receipt Date: 20251118
  Transmission Date: 20260117
  Serious: Yes (Other)
  Sender: BIOGEN
  Company Number: EU-BIOGEN-2090359

PATIENT
  Age: 51 Year
  Sex: Male
  Weight: 70 kg

DRUGS (3)
  1. NUSINERSEN [Suspect]
     Active Substance: NUSINERSEN
     Indication: Spinal muscular atrophy
  2. NUSINERSEN [Suspect]
     Active Substance: NUSINERSEN
  3. RISDIPLAM [Concomitant]
     Active Substance: RISDIPLAM
     Indication: Product used for unknown indication
     Dosage: 6.6 ML MAXIMUM DOSE

REACTIONS (5)
  - Partial seizures [Unknown]
  - Pyrexia [Unknown]
  - Clumsiness [Unknown]
  - Fatigue [Recovering/Resolving]
  - Food intolerance [Unknown]

NARRATIVE: CASE EVENT DATE: 20240901
